FAERS Safety Report 7982903-4 (Version None)
Quarter: 2011Q4

REPORT INFORMATION
  Report Type: 
  Country: None (occurrence: None)
  Receive Date: 20111215
  Receipt Date: 20111205
  Transmission Date: 20120403
  Serious: Yes (Death, Other)
  Sender: FDA-Public Use
  Company Number: PHHY2011US108190

PATIENT
  Age: 45 Year
  Sex: Female

DRUGS (8)
  1. AMLODIPINE BESYLATE [Suspect]
     Dosage: 10 MG, 30 TABLETS
  2. METFORMIN HCL [Suspect]
     Dosage: 1000 MG, 9 TABLETS
  3. IRBESARTAN [Suspect]
  4. FENOFIBRIC ACID [Suspect]
  5. HYDROCHLOROTHIAZIDE [Suspect]
  6. METOPROLOL TARTRATE [Suspect]
     Dosage: 25 MG, 10 TABLETS
  7. ZOLPIDEM [Suspect]
  8. SITAGLIPTIN [Suspect]

REACTIONS (18)
  - LACTIC ACIDOSIS [None]
  - DYSPNOEA [None]
  - OVERDOSE [None]
  - FAECAL INCONTINENCE [None]
  - DYSARTHRIA [None]
  - ALANINE AMINOTRANSFERASE INCREASED [None]
  - ASPARTATE AMINOTRANSFERASE INCREASED [None]
  - BLOOD GLUCOSE INCREASED [None]
  - BLOOD PRESSURE DECREASED [None]
  - SOMNOLENCE [None]
  - PO2 DECREASED [None]
  - UNRESPONSIVE TO STIMULI [None]
  - ATRIOVENTRICULAR BLOCK FIRST DEGREE [None]
  - SUICIDAL IDEATION [None]
  - LETHARGY [None]
  - HEART RATE DECREASED [None]
  - BLOOD SODIUM DECREASED [None]
  - PUPIL FIXED [None]
